FAERS Safety Report 5173791-2 (Version None)
Quarter: 2006Q4

REPORT INFORMATION
  Report Type: 
  Country: None (occurrence: None)
  Receive Date: 20061214
  Receipt Date: 20061006
  Transmission Date: 20070319
  Serious: Yes (Other)
  Sender: FDA-Public Use
  Company Number: US-GLAXOSMITHKLINE-A0622764A

PATIENT
  Age: 18 Year
  Sex: Male
  Weight: 55.9 kg

DRUGS (3)
  1. WELLBUTRIN XL [Suspect]
     Indication: DEPRESSION
     Dosage: 300MG PER DAY
     Route: 048
     Dates: start: 20060701
  2. ADDERALL 10 [Suspect]
     Indication: ATTENTION DEFICIT/HYPERACTIVITY DISORDER
     Dosage: 70MG PER DAY
     Route: 048
     Dates: start: 20060701
  3. CLONIDINE [Concomitant]
     Route: 048
     Dates: start: 20060801

REACTIONS (2)
  - GRAND MAL CONVULSION [None]
  - POSTICTAL STATE [None]
